FAERS Safety Report 8791876 (Version 3)
Quarter: 2013Q2

REPORT INFORMATION
  Report Type: Report from Study
  Country: JP (occurrence: JP)
  Receive Date: 20120918
  Receipt Date: 20130404
  Transmission Date: 20140414
  Serious: Yes (Hospitalization, Other)
  Sender: FDA-Public Use
  Company Number: JP-009507513-2012SP028335

PATIENT
  Age: 64 Year
  Sex: Male
  Weight: 75 kg

DRUGS (43)
  1. PEGINTRON [Suspect]
     Indication: CHRONIC HEPATITIS C
     Dosage: 1.5 MICROGRAM PER KILOGRAM, QW
     Route: 058
     Dates: start: 20120319
  2. REBETOL [Suspect]
     Indication: CHRONIC HEPATITIS C
     Dosage: 800 MG, QD
     Route: 048
     Dates: start: 20120319, end: 20120514
  3. REBETOL [Suspect]
     Dosage: 400 MG, QD
     Route: 048
     Dates: start: 20120611
  4. TELAVIC [Suspect]
     Indication: CHRONIC HEPATITIS C
     Dosage: 2250 MG, QD
     Route: 048
     Dates: start: 20120319, end: 20120430
  5. TELAVIC [Suspect]
     Dosage: 1500 MG, QD
     Route: 048
     Dates: start: 20120501, end: 20120506
  6. TELAVIC [Suspect]
     Dosage: 750 MG, QD
     Route: 048
     Dates: start: 20120507, end: 20120514
  7. JANUVIA TABLETS 50MG [Concomitant]
     Indication: DIABETES MELLITUS
     Dosage: 50 MG, QD
     Route: 048
     Dates: start: 20120410, end: 20120624
  8. PREDONINE [Suspect]
     Indication: ADVERSE EVENT
     Dosage: 30 MG, QD, FORMULATION :INJ
     Route: 051
     Dates: start: 20120321, end: 20120323
  9. PREDONINE [Suspect]
     Dosage: 30 MG, QD, FORMULATION :POR
     Route: 048
     Dates: start: 20120324, end: 20120326
  10. PREDONINE [Suspect]
     Dosage: 20 MG, QD,FORMULATION: POR
     Route: 048
     Dates: start: 20120327, end: 20120329
  11. PREDONINE [Suspect]
     Dosage: 15 MG, QD,FORMULATION:POR
     Route: 048
     Dates: start: 20120330, end: 20120401
  12. PREDONINE [Suspect]
     Dosage: 10 MG, QD,FORMULATION:POR
     Route: 048
     Dates: start: 20120402, end: 20120409
  13. PREDONINE [Suspect]
     Dosage: 7.5 MG, QD,FORMULATION:POR
     Route: 048
     Dates: start: 20120410, end: 20120416
  14. PREDONINE [Suspect]
     Dosage: 5 MG, QD,FORMULATION:POR
     Route: 048
     Dates: start: 20120417, end: 20120423
  15. PREDONINE [Suspect]
     Dosage: 7.5 MG, QD,FORMULATION:POR
     Route: 048
     Dates: start: 20120424, end: 20120520
  16. PREDONINE [Suspect]
     Dosage: 5 MG, QD, FORMULATION: POR
     Route: 048
     Dates: start: 20120521, end: 20120527
  17. PREDONINE [Suspect]
     Dosage: 2 MG, QD, FORMULATION: POR
     Route: 048
     Dates: start: 20120528, end: 20120530
  18. BLOPRESS [Concomitant]
     Indication: HYPERTENSION
     Dosage: 12 MG, QD,FORMULATION:POR
     Route: 048
     Dates: start: 20090202, end: 20120415
  19. BLOPRESS [Concomitant]
     Dosage: 8 MG, QD,FORMULATION:POR, TAKING IT BY THE HYPERTONIC
     Route: 048
     Dates: start: 20120416, end: 20120528
  20. BLOPRESS [Concomitant]
     Dosage: 8 MG, QD, FORMULATION: POR
     Route: 048
     Dates: start: 20120529
  21. BLADDERON [Concomitant]
     Indication: NOCTURIA
     Dosage: 200 MG, QD,FORMULATION:POR
     Route: 048
     Dates: start: 20100222, end: 20120408
  22. BLADDERON [Concomitant]
     Indication: DYSURIA
     Dosage: 200 MG, QD, FORMULATION:POR
     Route: 048
     Dates: start: 20120410, end: 20120412
  23. CALBLOCK [Concomitant]
     Indication: HYPERTENSION
     Dosage: 16 MG, QD,FORMULATION:POR
     Route: 048
     Dates: start: 20110530, end: 20120501
  24. FLIVAS OD [Concomitant]
     Indication: BENIGN PROSTATIC HYPERPLASIA
     Dosage: 15 MG, QD, FORMULATION: POR
     Route: 048
     Dates: start: 20111128, end: 20120408
  25. NAUZELIN [Concomitant]
     Indication: PROPHYLAXIS
     Dosage: 30 MG, QD,FORMULATION:POR
     Route: 048
     Dates: start: 20120319, end: 20120624
  26. ALLELOCK [Concomitant]
     Indication: PROPHYLAXIS
     Dosage: 10 MG, QD,FORMULATION:POR
     Route: 048
     Dates: start: 20120319, end: 20120402
  27. LACTEC [Concomitant]
     Indication: DIABETES MELLITUS
     Dosage: 2000 ML QD
     Route: 042
     Dates: start: 20120409, end: 20120410
  28. HUMULIN R [Concomitant]
     Indication: DIABETES MELLITUS
     Dosage: 24 DF, QD
     Route: 042
     Dates: start: 20120409, end: 20120409
  29. HUMULIN R [Concomitant]
     Dosage: 14 DF, QD
     Route: 058
     Dates: start: 20120409, end: 20120409
  30. HUMULIN R [Concomitant]
     Dosage: 22 DF, QD
     Route: 058
     Dates: start: 20120410, end: 20120410
  31. HUMULIN R [Concomitant]
     Dosage: 16 DF, QD
     Route: 058
     Dates: start: 20120411, end: 20120411
  32. HUMULIN R [Concomitant]
     Dosage: 14 DF, QD
     Route: 058
     Dates: start: 20120412, end: 20120412
  33. HUMULIN R [Concomitant]
     Dosage: UNK
  34. AMARYL [Concomitant]
     Indication: DIABETES MELLITUS
     Dosage: 1 MG, QD,FORMULATION:POR
     Dates: start: 20120410, end: 20120528
  35. EVIPROSTAT (HORSETAIL (+) MANGANESE SULFATE (+) PIPSISSEWA (+) POPULUS [Concomitant]
     Indication: DYSURIA
     Dosage: 2 DF, QD
     Route: 048
     Dates: start: 20120410, end: 20120412
  36. URIEF [Concomitant]
     Indication: DYSURIA
     Dosage: 8 MG, QD,FORMULATION:POR
     Route: 048
     Dates: start: 20120410, end: 20120412
  37. URSO [Concomitant]
     Indication: CHRONIC HEPATITIS C
     Dosage: 400 MG, QD,FORMULATION:POR
     Route: 048
     Dates: start: 20120416, end: 20120514
  38. TAKEPRON [Concomitant]
     Indication: PROPHYLAXIS
     Dosage: 30 MG, QD, FOR THE ANOREXIA, NAUSEA,FORMULATION:POR
     Route: 048
     Dates: start: 20120416
  39. DEXCHLORPHENIRAMINE MALEATE (+) GUAIFENESIN (+) PSEUDOEPHEDRINE SULFAT [Concomitant]
     Dosage: 1 DF, BID
     Route: 065
     Dates: start: 20120322, end: 20120402
  40. MYSLEE [Concomitant]
     Dosage: 1 DF, QD
     Route: 065
     Dates: start: 20120322
  41. MUCOSTA [Concomitant]
     Dosage: 1 DF, BID
     Route: 065
     Dates: start: 20120323
  42. ELECTROLYTES (UNSPECIFIED) (+) SODIUM LACTATE [Concomitant]
     Dosage: INDICATION: FLUID REPLACEMENT THERAPY FOR THIRST, POLYDIPSIA AND POLYUREA, DOSE: 2000 CC
     Route: 065
     Dates: start: 20120409
  43. ANTEBATE [Concomitant]
     Dosage: 0.05% ANTEBATE LOTION
     Route: 065
     Dates: start: 20120501

REACTIONS (3)
  - Diabetes mellitus [Not Recovered/Not Resolved]
  - Anaemia [Not Recovered/Not Resolved]
  - Renal impairment [Not Recovered/Not Resolved]
